FAERS Safety Report 7650109-4 (Version None)
Quarter: 2011Q3

REPORT INFORMATION
  Report Type: 
  Country: None (occurrence: None)
  Receive Date: 20110727
  Receipt Date: 20110711
  Transmission Date: 20111222
  Serious: Yes (Disabling)
  Sender: FDA-Public Use
  Company Number: 2011MA008670

PATIENT
  Age: 27 Year
  Sex: Female

DRUGS (1)
  1. LIDOCAINE HCL [Suspect]
     Indication: NERVE BLOCK
     Dosage: 1.8 ML;    ;IART
     Route: 013

REACTIONS (4)
  - ACCOMMODATION DISORDER [None]
  - EYE DISORDER [None]
  - PANIC REACTION [None]
  - BLINDNESS TRANSIENT [None]
